FAERS Safety Report 12305432 (Version 1)
Quarter: 2016Q2

REPORT INFORMATION
  Report Type: Spontaneous
  Country: US (occurrence: US)
  Receive Date: 20160426
  Receipt Date: 20160426
  Transmission Date: 20160815
  Serious: Yes (Disabling, Other)
  Sender: FDA-Public Use
  Company Number: US-ACTAVIS-2016-08603

PATIENT
  Age: 45 Year
  Sex: Male

DRUGS (7)
  1. ALFACALCIDOL (UNKNOWN) [Suspect]
     Active Substance: ALFACALCIDOL
     Indication: PRODUCT USED FOR UNKNOWN INDICATION
     Dosage: TWICE OR THRICE WEEKLY
     Route: 065
  2. DENOSUMAB [Concomitant]
     Active Substance: DENOSUMAB
     Indication: PRODUCT USED FOR UNKNOWN INDICATION
     Dosage: UNK
     Route: 065
  3. CALCITONIN, HUMAN [Concomitant]
     Indication: PRODUCT USED FOR UNKNOWN INDICATION
     Dosage: UNK
     Route: 058
  4. ALENDRONIC ACID (UNKNOWN) [Suspect]
     Active Substance: ALENDRONIC ACID
     Indication: PRODUCT USED FOR UNKNOWN INDICATION
     Dosage: UNK
     Route: 065
  5. ETIDRONATE DISODIUM (UNKNOWN) [Suspect]
     Active Substance: ETIDRONATE DISODIUM
     Indication: PRODUCT USED FOR UNKNOWN INDICATION
     Dosage: UNK
     Route: 065
  6. RISEDRONIC ACID [Suspect]
     Active Substance: RISEDRONIC ACID
     Indication: PRODUCT USED FOR UNKNOWN INDICATION
     Dosage: UNK
     Route: 065
  7. PAMIDRONATE DISODIUM (UNKNOWN) [Suspect]
     Active Substance: PAMIDRONATE DISODIUM
     Indication: PRODUCT USED FOR UNKNOWN INDICATION
     Dosage: UNK
     Route: 065

REACTIONS (2)
  - Deafness [Unknown]
  - Extraskeletal ossification [Unknown]
